FAERS Safety Report 17786038 (Version 1)
Quarter: 2020Q2

REPORT INFORMATION
  Report Type: Spontaneous
  Country: US (occurrence: US)
  Receive Date: 20200514
  Receipt Date: 20200514
  Transmission Date: 20200714
  Serious: Yes (Other)
  Sender: FDA-Public Use
  Company Number: US-GILEAD-2020-0467067

PATIENT

DRUGS (1)
  1. ATRIPLA [Suspect]
     Active Substance: EFAVIRENZ\EMTRICITABINE\TENOFOVIR DISOPROXIL FUMARATE
     Indication: PRODUCT USED FOR UNKNOWN INDICATION
     Dosage: UNK
     Route: 048
     Dates: start: 2011, end: 2017

REACTIONS (7)
  - Vitamin D deficiency [Unknown]
  - Urosepsis [Unknown]
  - Nephrolithiasis [Unknown]
  - Renal failure [Unknown]
  - Bone density decreased [Unknown]
  - Pyelonephritis [Unknown]
  - Proteinuria [Unknown]
